FAERS Safety Report 9150609 (Version 1)
Quarter: 2013Q1

REPORT INFORMATION
  Report Type: Spontaneous
  Country: US (occurrence: None)
  Receive Date: 20130305
  Receipt Date: 20130305
  Transmission Date: 20140127
  Serious: No
  Sender: FDA-Public Use
  Company Number: None

PATIENT
  Age: 50 Year
  Sex: Female
  Weight: 75.3 kg

DRUGS (2)
  1. MANNITOL [Suspect]
     Dosage: PO DAILY
     Route: 048
  2. LEVOTHYROXINE [Concomitant]

REACTIONS (2)
  - Pollakiuria [None]
  - Product formulation issue [None]
